FAERS Safety Report 5343846-8 (Version None)
Quarter: 2007Q2

REPORT INFORMATION
  Report Type: 
  Country: None (occurrence: None)
  Receive Date: 20070531
  Receipt Date: 20070518
  Transmission Date: 20071010
  Serious: Yes (Other)
  Sender: FDA-Public Use
  Company Number: 2007-157218-NL

PATIENT
  Age: 34 Year
  Sex: Female
  Weight: 54.4 kg

DRUGS (3)
  1. NUVARING [Suspect]
     Indication: CONTRACEPTION
     Dosage: VAGINAL, 3 WEEKS IN, 1 WEEK OUT
     Route: 067
     Dates: start: 20050901
  2. AZMACORT [Concomitant]
  3. PREVACID [Concomitant]

REACTIONS (1)
  - HEPATITIS C [None]
